FAERS Safety Report 5318972-X (Version None)
Quarter: 2007Q2

REPORT INFORMATION
  Report Type: 
  Country: None (occurrence: None)
  Receive Date: 20070508
  Receipt Date: 20070507
  Transmission Date: 20071010
  Serious: Yes (Hospitalization)
  Sender: FDA-Public Use
  Company Number: IN-BRISTOL-MYERS SQUIBB COMPANY-13770508

PATIENT
  Age: 42 Year
  Sex: Male
  Weight: 32 kg

DRUGS (11)
  1. CARBOPLATIN [Suspect]
     Indication: SMALL CELL LUNG CANCER STAGE UNSPECIFIED
     Route: 042
     Dates: start: 20070421, end: 20070421
  2. PEMETREXED DISODIUM [Suspect]
     Indication: SMALL CELL LUNG CANCER STAGE UNSPECIFIED
     Route: 042
     Dates: start: 20070421, end: 20070421
  3. FOLIC ACID [Concomitant]
     Dates: start: 20070417
  4. VITAMIN B-12 [Concomitant]
     Dates: start: 20070419
  5. DEXAMETHASONE 0.5MG TAB [Concomitant]
     Dates: start: 20070420
  6. ATIVAN [Concomitant]
     Dates: start: 20070422, end: 20070423
  7. GRANISETRON  HCL [Concomitant]
     Dates: start: 20070422, end: 20070423
  8. PERINORM [Concomitant]
     Dates: start: 20070422, end: 20070423
  9. RANTAC [Concomitant]
     Dates: start: 20070422, end: 20070423
  10. TANTUM [Concomitant]
     Indication: PROPHYLAXIS OF NAUSEA AND VOMITING
     Dates: start: 20070422
  11. PANTOPRAZOLE [Concomitant]
     Indication: GASTRITIS PROPHYLAXIS

REACTIONS (1)
  - LUNG CONSOLIDATION [None]
